FAERS Safety Report 8201839 (Version 2)
Quarter: 2012Q4

REPORT INFORMATION
  Report Type: Spontaneous
  Country: US (occurrence: None)
  Receive Date: 20111018
  Receipt Date: 20120905
  Transmission Date: 20130627
  Serious: Yes (Hospitalization)
  Sender: FDA-Public Use
  Company Number: 2011-4109

PATIENT
  Age: 6 Year
  Sex: Male
  Weight: 19.4 kg

DRUGS (7)
  1. INCRELEX [Suspect]
     Indication: PRIMARY INSULIN LIKE GROWTH FACTOR-1 DEFICIENCY
     Dosage: (105 ug/kg,2 in 1d)
     Dates: start: 20110808, end: 20111004
  2. INCRELEX [Suspect]
     Indication: PRIMARY INSULIN LIKE GROWTH FACTOR-1 DEFICIENCY
     Dosage: (40 ug/kg,2 in 1 d)
     Dates: start: 20080114, end: 20080219
  3. INCRELEX [Suspect]
     Indication: PRIMARY INSULIN LIKE GROWTH FACTOR-1 DEFICIENCY
     Dosage: (120 ug/kg,2 in 1 d)
     Dates: start: 20080220, end: 20081210
  4. INCRELEX [Suspect]
     Indication: PRIMARY INSULIN LIKE GROWTH FACTOR-1 DEFICIENCY
     Dosage: (0.15 mg,2 in 1 d)
     Dates: start: 20081211, end: 20090317
  5. INCRELEX [Suspect]
     Indication: PRIMARY INSULIN LIKE GROWTH FACTOR-1 DEFICIENCY
     Dates: start: 20090318, end: 20090719
  6. INCRELEX [Suspect]
     Indication: PRIMARY INSULIN LIKE GROWTH FACTOR-1 DEFICIENCY
     Dates: start: 20090720, end: 20110130
  7. INCRELEX [Suspect]
     Indication: PRIMARY INSULIN LIKE GROWTH FACTOR-1 DEFICIENCY
     Dosage: (55 ug/kg,2 in 1 d)
     Dates: start: 20110131, end: 20110807

REACTIONS (2)
  - PYELONEPHRITIS [None]
  - DRUG DOSE OMISSION [None]
